FAERS Safety Report 7837444-1 (Version None)
Quarter: 2011Q4

REPORT INFORMATION
  Report Type: 
  Country: None (occurrence: None)
  Receive Date: 20111024
  Receipt Date: 20101122
  Transmission Date: 20120403
  Serious: No
  Sender: FDA-Public Use
  Company Number: US-ABBOTT-10P-163-0687136-00

PATIENT
  Sex: Female

DRUGS (4)
  1. LUPRON [Suspect]
     Indication: PROPHYLAXIS
  2. LUPRON [Suspect]
     Indication: NEOPLASM MALIGNANT
  3. ZOMETA [Suspect]
     Indication: PROPHYLAXIS
  4. ZOMETA [Suspect]
     Indication: METASTASES TO BONE

REACTIONS (4)
  - PRESYNCOPE [None]
  - CHILLS [None]
  - INJECTION SITE PAIN [None]
  - PYREXIA [None]
